FAERS Safety Report 7385480-4 (Version None)
Quarter: 2011Q1

REPORT INFORMATION
  Report Type: 
  Country: None (occurrence: None)
  Receive Date: 20110330
  Receipt Date: 20110118
  Transmission Date: 20110831
  Serious: No
  Sender: FDA-Public Use
  Company Number: US-AMGEN-USASP2011003356

PATIENT
  Sex: Female
  Weight: 76.19 kg

DRUGS (3)
  1. NPLATE [Suspect]
     Indication: IDIOPATHIC THROMBOCYTOPENIC PURPURA
     Dosage: 1 A?G/KG, UNK
     Dates: start: 20091203
  2. NPLATE [Suspect]
     Dosage: 70 A?G/KG, UNK
     Dates: end: 20100806
  3. DILANTIN [Concomitant]

REACTIONS (2)
  - FALL [None]
  - DRUG LEVEL DECREASED [None]
